FAERS Safety Report 8243259-5 (Version None)
Quarter: 2012Q1

REPORT INFORMATION
  Report Type: 
  Country: None (occurrence: None)
  Receive Date: 20120314
  Receipt Date: 20101115
  Transmission Date: 20120608
  Serious: Yes (Hospitalization)
  Sender: FDA-Public Use
  Company Number: PHHY2010US77908

PATIENT
  Age: 48 Year
  Sex: Male

DRUGS (1)
  1. FANAPT [Suspect]
     Indication: SCHIZOPHRENIA
     Dosage: 4 MG, BID, ORAL
     Route: 048
     Dates: start: 20101101, end: 20101108

REACTIONS (3)
  - OEDEMA [None]
  - PAIN IN EXTREMITY [None]
  - GAIT DISTURBANCE [None]
